FAERS Safety Report 19124854 (Version 1)
Quarter: 2021Q2

REPORT INFORMATION
  Report Type: Spontaneous
  Country: CA (occurrence: CA)
  Receive Date: 20210413
  Receipt Date: 20210413
  Transmission Date: 20210717
  Serious: Yes (Hospitalization)
  Sender: FDA-Public Use
  Company Number: CA-JNJFOC-20210415440

PATIENT
  Age: 79 Year
  Sex: Male

DRUGS (11)
  1. XARELTO [Suspect]
     Active Substance: RIVAROXABAN
     Indication: ARTERIOSCLEROSIS
     Dosage: 15 MG, QD
     Route: 048
  2. CALCIUM [Concomitant]
     Active Substance: CALCIUM
     Dosage: UNK
  3. RISEDRONATE SODIUM. [Concomitant]
     Active Substance: RISEDRONATE SODIUM
     Dosage: UNK
  4. TYLENOL ARTHRITIS PAIN [Concomitant]
     Active Substance: ACETAMINOPHEN
     Dosage: UNK
  5. VITAMIN B12 [Concomitant]
     Active Substance: CYANOCOBALAMIN
     Dosage: UNK
  6. ATORVASTATIN [Concomitant]
     Active Substance: ATORVASTATIN
     Dosage: UNK
  7. VOLTAREN EMULGEL [Concomitant]
     Active Substance: DICLOFENAC DIETHYLAMINE
     Dosage: UNK
     Route: 065
  8. MACROGOL [Concomitant]
     Active Substance: POLYETHYLENE GLYCOLS
     Dosage: UNK
  9. D?TABS [Concomitant]
     Active Substance: CHOLECALCIFEROL
     Dosage: UNK
  10. FERROUS SULPHATE [FERROUS SULFATE] [Concomitant]
     Active Substance: FERROUS SULFATE
     Dosage: UNK
  11. BISOPROLOL [Concomitant]
     Active Substance: BISOPROLOL
     Dosage: UNK

REACTIONS (3)
  - Duodenal ulcer [Not Recovered/Not Resolved]
  - Shock [Not Recovered/Not Resolved]
  - Upper gastrointestinal haemorrhage [Not Recovered/Not Resolved]
